FAERS Safety Report 9518246 (Version 1)
Quarter: 2013Q3

REPORT INFORMATION
  Report Type: Spontaneous
  Country: US (occurrence: None)
  Receive Date: 20130910
  Receipt Date: 20130910
  Transmission Date: 20140515
  Serious: Yes (Hospitalization)
  Sender: FDA-Public Use
  Company Number: None

PATIENT
  Sex: Male
  Weight: 58.97 kg

DRUGS (1)
  1. ADVAIR DISKUS [Suspect]
     Indication: DYSPNOEA
     Dosage: 250-50 2 PUFFS TWICE DAILY BY MOUTH

REACTIONS (1)
  - Pneumonia [None]
